FAERS Safety Report 17393812 (Version 1)
Quarter: 2020Q1

REPORT INFORMATION
  Report Type: Report from Study
  Country: None (occurrence: DE)
  Receive Date: 20200209
  Receipt Date: 20200209
  Transmission Date: 20200409
  Serious: Yes (Hospitalization)
  Sender: FDA-Public Use
  Company Number: DE-ABBVIE-20K-062-3265727-00

PATIENT
  Age: 74 Year
  Sex: Female

DRUGS (11)
  1. MTX [Concomitant]
     Active Substance: METHOTREXATE SODIUM
  2. MABTHERA [Concomitant]
     Active Substance: RITUXIMAB
     Dates: start: 201607, end: 20170426
  3. ENBREL [Concomitant]
     Active Substance: ETANERCEPT
     Indication: PRODUCT USED FOR UNKNOWN INDICATION
     Dates: start: 200707, end: 200812
  4. ROACTEMRA [Concomitant]
     Active Substance: TOCILIZUMAB
     Indication: PRODUCT USED FOR UNKNOWN INDICATION
     Dates: start: 201006, end: 201009
  5. MTX [Concomitant]
     Active Substance: METHOTREXATE SODIUM
  6. HUMIRA [Suspect]
     Active Substance: ADALIMUMAB
     Indication: RHEUMATOID ARTHRITIS
     Route: 058
     Dates: start: 200304, end: 200509
  7. HYDROXYCHLOROQUINE [Concomitant]
     Active Substance: HYDROXYCHLOROQUINE
     Indication: PRODUCT USED FOR UNKNOWN INDICATION
     Dates: start: 200304, end: 200304
  8. MTX [Concomitant]
     Active Substance: METHOTREXATE SODIUM
     Indication: PRODUCT USED FOR UNKNOWN INDICATION
     Dates: start: 199712
  9. MTX [Concomitant]
     Active Substance: METHOTREXATE SODIUM
  10. ORENCIA [Concomitant]
     Active Substance: ABATACEPT
     Indication: PRODUCT USED FOR UNKNOWN INDICATION
     Dates: start: 200904, end: 201005
  11. MABTHERA [Concomitant]
     Active Substance: RITUXIMAB
     Indication: PRODUCT USED FOR UNKNOWN INDICATION
     Dates: start: 201101, end: 201605

REACTIONS (6)
  - Ulcer [Unknown]
  - Hypothyroidism [Unknown]
  - Retention cyst [Unknown]
  - Weight decreased [Unknown]
  - Sinus tachycardia [Unknown]
  - Haemoptysis [Unknown]

NARRATIVE: CASE EVENT DATE: 20181122
